FAERS Safety Report 5985938-6 (Version None)
Quarter: 2008Q4

REPORT INFORMATION
  Report Type: 
  Country: None (occurrence: None)
  Receive Date: 20081205
  Receipt Date: 20081205
  Transmission Date: 20090506
  Serious: Yes (Other)
  Sender: FDA-Public Use
  Company Number: None

PATIENT
  Age: 52 Year
  Sex: Female
  Weight: 57.6068 kg

DRUGS (2)
  1. EVISTA [Suspect]
     Indication: BREAST CANCER FEMALE
     Dosage: 60 MG 1X/DAY
     Dates: start: 20080715, end: 20080903
  2. EVISTA [Suspect]
     Indication: PROPHYLAXIS
     Dosage: 60 MG 1X/DAY
     Dates: start: 20080715, end: 20080903

REACTIONS (3)
  - ENDOMETRIAL HYPERTROPHY [None]
  - GENITAL HAEMORRHAGE [None]
  - HYPOMENORRHOEA [None]
